FAERS Safety Report 8373332-2 (Version None)
Quarter: 2012Q2

REPORT INFORMATION
  Report Type: 
  Country: None (occurrence: None)
  Receive Date: 20120521
  Receipt Date: 20110602
  Transmission Date: 20120825
  Serious: No
  Sender: FDA-Public Use
  Company Number: US-TEVA-2011002807

PATIENT
  Sex: Female
  Weight: 90.8 kg

DRUGS (2)
  1. REQUIP [Concomitant]
     Dates: start: 20060101
  2. TREANDA [Suspect]
     Indication: CHRONIC LYMPHOCYTIC LEUKAEMIA
     Route: 042
     Dates: start: 20110501

REACTIONS (1)
  - WHITE BLOOD CELL COUNT DECREASED [None]
